FAERS Safety Report 13948229 (Version 1)
Quarter: 2017Q3

REPORT INFORMATION
  Report Type: Report from Study
  Country: US (occurrence: US)
  Receive Date: 20170908
  Receipt Date: 20170908
  Transmission Date: 20171128
  Serious: Yes (Other)
  Sender: FDA-Public Use
  Company Number: US-GILEAD-2017-0291669

PATIENT
  Age: 45 Year
  Sex: Female

DRUGS (3)
  1. COUMADIN [Concomitant]
     Active Substance: WARFARIN SODIUM
  2. AMBRISENTAN [Suspect]
     Active Substance: AMBRISENTAN
     Indication: PRODUCT USED FOR UNKNOWN INDICATION
     Dosage: 10 MG, QD
     Route: 065
  3. VELETRI [Concomitant]
     Active Substance: EPOPROSTENOL

REACTIONS (7)
  - Breast cancer [Unknown]
  - Hypersensitivity [Not Recovered/Not Resolved]
  - Breast cyst [Unknown]
  - Nasal congestion [Not Recovered/Not Resolved]
  - Breast disorder [Unknown]
  - Unevaluable event [Not Recovered/Not Resolved]
  - Rhinorrhoea [Unknown]
